FAERS Safety Report 22072518 (Version 1)
Quarter: 2023Q1

REPORT INFORMATION
  Report Type: Spontaneous
  Country: NL (occurrence: NL)
  Receive Date: 20230308
  Receipt Date: 20230308
  Transmission Date: 20230418
  Serious: Yes (Hospitalization)
  Sender: FDA-Public Use
  Company Number: None

PATIENT
  Age: 75 Year
  Sex: Male

DRUGS (17)
  1. RINVOQ [Suspect]
     Active Substance: UPADACITINIB
     Indication: Ankylosing spondylitis
     Dosage: 1DD1
     Dates: start: 20220930
  2. PARACETAMOL TABLET  500MG / PARACETAMOL TEVA TABLET 500MG [Concomitant]
     Indication: Product used for unknown indication
  3. SALBUTAMOL INHALATIEPOEDER 200UG/DO / VENTOLIN DISKUS INHPDR 200MCG... [Concomitant]
     Indication: Product used for unknown indication
  4. ALENDRONINEZUUR TABLET 70MG / ALENDRONINEZUUR AUROBINDO TABLET 70MG [Concomitant]
     Indication: Product used for unknown indication
  5. CALCIUMCARB/COLECALC KAUWTB 1,25G/800IE (500MG CA) / TACAL D3 KAUWT... [Concomitant]
     Indication: Product used for unknown indication
  6. AMILORIDE/HYDROCHLOORTHIAZIDE TABLET 5/50MG / AMILORIDE HCL/HYDROCH... [Concomitant]
     Indication: Product used for unknown indication
  7. OMEPRAZOL TABLET MSR 40MG / LOSEC MUPS TABLET MSR 40MG [Concomitant]
     Indication: Product used for unknown indication
  8. CICLESONIDE AEROSOL 160UG/DO / ALVESCO 160 AEROSOL 160MCG/DO SPBS  ... [Concomitant]
     Indication: Product used for unknown indication
  9. BECLOMETASON/FORMOTEROL AEROSOL 100/6UG/DO / FOSTER AEROSOL 100/6MC... [Concomitant]
     Indication: Product used for unknown indication
  10. FOLIUMZUUR TABLET 5MG / FOLIUMZUUR AUROBINDO TABLET 5MG [Concomitant]
     Indication: Product used for unknown indication
  11. LOSARTAN TABLET FO 100MG / LOSARTAN KALIUM XIROMED TABLET OMHULD 100MG [Concomitant]
     Indication: Product used for unknown indication
  12. VERAPAMIL TABLET 120MG / VERAPAMIL HCL SANDOZ TABLET 120MG [Concomitant]
     Indication: Product used for unknown indication
  13. APIXABAN TABLET 5MG / ELIQUIS TABLET FILMOMHULD 5MG [Concomitant]
     Indication: Product used for unknown indication
  14. METHOTREXAAT INJVLST  50MG/ML / INJEXATE INJVLST 15MG/0,3ML (50MG/M... [Concomitant]
     Indication: Product used for unknown indication
  15. DESLORATADINE DRANK 0,5MG/ML / DESLORATADINE DOUBLE-E PHARMA DRANK ... [Concomitant]
     Indication: Product used for unknown indication
  16. PREDNISOLON TABLET  5MG / PREDNISOLON CF TABLET 5MG [Concomitant]
     Indication: Product used for unknown indication
  17. ACETYLCYSTEINE BRUISTABLET 600MG / LIVSANE HOEST BRUISTAB ACETYLCYS... [Concomitant]
     Indication: Product used for unknown indication

REACTIONS (3)
  - Atrial fibrillation [Recovering/Resolving]
  - Oral candidiasis [Recovering/Resolving]
  - Chronic obstructive pulmonary disease [Recovering/Resolving]

NARRATIVE: CASE EVENT DATE: 20221101
